FAERS Safety Report 9070047 (Version 1)
Quarter: 2013Q1

REPORT INFORMATION
  Report Type: Report from Study
  Country: US (occurrence: US)
  Receive Date: 20130129
  Receipt Date: 20130129
  Transmission Date: 20140127
  Serious: No
  Sender: FDA-Public Use
  Company Number: US-ABBOTT-12P-163-0926809-00

PATIENT
  Age: 60 Year
  Sex: Male

DRUGS (18)
  1. HUMIRA 40 MG/0.8 ML PEN [Suspect]
     Indication: COLITIS ULCERATIVE
     Dosage: DAY 1
     Route: 058
     Dates: start: 20120405, end: 20120405
  2. HUMIRA 40 MG/0.8 ML PEN [Suspect]
     Dosage: DAY 15
     Route: 058
  3. HUMIRA 40 MG/0.8 ML PEN [Suspect]
     Dosage: DAY 29
     Route: 058
  4. HUMIRA 40 MG/0.8 ML PEN [Suspect]
     Dosage: MAINTENANCE DOSE
     Route: 058
  5. ASACOL [Concomitant]
     Indication: COLITIS ULCERATIVE
     Dosage: 8 DAILY
  6. ASA [Concomitant]
     Indication: PRODUCT USED FOR UNKNOWN INDICATION
     Dosage: 81MG DAILY
  7. BENAZEPRIL [Concomitant]
     Indication: HYPERTENSION
     Dosage: 20MG DAILY
  8. CITRACAL [Concomitant]
     Indication: COLITIS ULCERATIVE
     Dosage: 500MG DAILY
  9. CRESTOR [Concomitant]
     Indication: BLOOD CHOLESTEROL INCREASED
     Dosage: 20MG DAILY
  10. DILAUDID [Concomitant]
     Indication: PRODUCT USED FOR UNKNOWN INDICATION
     Dosage: PUMP- UNKNOWN MG DAILY
     Route: 037
  11. DULERA [Concomitant]
     Indication: CHRONIC OBSTRUCTIVE PULMONARY DISEASE
     Dosage: 2 PUFFS BID
     Route: 055
  12. ENTOCORT [Concomitant]
     Indication: COLITIS ULCERATIVE
     Dosage: DAILY
  13. GABAPENTIN [Concomitant]
     Indication: BACK PAIN
  14. SYNTHROID [Concomitant]
     Indication: HYPOTHYROIDISM
     Dosage: 0.1MCG DAILY
  15. LAPORIC ACID [Concomitant]
     Indication: VITAMIN SUPPLEMENTATION
     Dosage: 300MG DAILY
  16. OMEGA 3 [Concomitant]
     Indication: PRODUCT USED FOR UNKNOWN INDICATION
     Dosage: 4.4GMS DAILY
  17. AMAPROZOLE [Concomitant]
     Indication: GASTROOESOPHAGEAL REFLUX DISEASE
     Dosage: 20MG DAILY
  18. SKELAXIN [Concomitant]
     Indication: BACK PAIN

REACTIONS (1)
  - Injection site pain [Recovered/Resolved]
